FAERS Safety Report 8329103-6 (Version None)
Quarter: 2012Q2

REPORT INFORMATION
  Report Type: 
  Country: None (occurrence: None)
  Receive Date: 20120502
  Receipt Date: 20120424
  Transmission Date: 20120825
  Serious: Yes (Other)
  Sender: FDA-Public Use
  Company Number: CL-PFIZER INC-2012102189

PATIENT
  Age: 74 Year
  Sex: Female

DRUGS (3)
  1. VANCOMYCIN [Concomitant]
     Indication: MENINGITIS PNEUMOCOCCAL
  2. AMPICILLIN SODIUM/SULBACTAM SODIUM [Suspect]
     Indication: PNEUMONIA
     Dosage: UNK
  3. CEFTRIAXONE [Concomitant]
     Indication: MENINGITIS PNEUMOCOCCAL

REACTIONS (1)
  - LINEAR IGA DISEASE [None]
